FAERS Safety Report 14002203 (Version 1)
Quarter: 2017Q3

REPORT INFORMATION
  Report Type: Spontaneous
  Country: US (occurrence: US)
  Receive Date: 20170922
  Receipt Date: 20170922
  Transmission Date: 20171128
  Serious: No
  Sender: FDA-Public Use
  Company Number: US-MAYNE PHARMA-2017MYN000518

PATIENT

DRUGS (7)
  1. CARBIDOPA/LEVODOPA [Suspect]
     Active Substance: CARBIDOPA\LEVODOPA
     Indication: PARKINSON^S DISEASE
     Dosage: UNK
  2. SOTALOL. [Concomitant]
     Active Substance: SOTALOL
     Dosage: UNK
     Dates: start: 2015
  3. SENOKOT [Concomitant]
     Active Substance: SENNOSIDES
     Dosage: UNK
  4. DOMPERIDONE [Concomitant]
     Active Substance: DOMPERIDONE
     Dosage: UNK
  5. MIRALAX [Concomitant]
     Active Substance: POLYETHYLENE GLYCOL 3350
     Dosage: UNK
  6. COLACE [Concomitant]
     Active Substance: DOCUSATE SODIUM
     Dosage: UNK
  7. CARBIDOPA/LEVODOPA [Suspect]
     Active Substance: CARBIDOPA\LEVODOPA
     Dosage: 2.5 DF, Q2H FROM 7AM TO 9PM
     Route: 048

REACTIONS (2)
  - Parkinson^s disease [Not Recovered/Not Resolved]
  - Product substitution issue [Unknown]
